FAERS Safety Report 22290387 (Version 2)
Quarter: 2023Q2

REPORT INFORMATION
  Report Type: Spontaneous
  Country: US (occurrence: US)
  Receive Date: 20230505
  Receipt Date: 20230627
  Transmission Date: 20230722
  Serious: No
  Sender: FDA-Public Use
  Company Number: US-PFIZER INC-PV202300070276

PATIENT
  Age: 88 Year
  Sex: Female
  Weight: 49.887 kg

DRUGS (1)
  1. IBRANCE [Suspect]
     Active Substance: PALBOCICLIB
     Indication: Breast cancer
     Dosage: 100 MG, CYCLIC (ONCE A DAY 3 WEEKS ON, 1 WEEK OFF)

REACTIONS (1)
  - Gait disturbance [Unknown]
